FAERS Safety Report 23727492 (Version 1)
Quarter: 2024Q2

REPORT INFORMATION
  Report Type: Report from Study
  Country: FR (occurrence: FR)
  Receive Date: 20240410
  Receipt Date: 20240410
  Transmission Date: 20240716
  Serious: Yes (Death)
  Sender: FDA-Public Use
  Company Number: FR-002147023-NVSC2024FR043764

PATIENT
  Sex: Male

DRUGS (1)
  1. PLUVICTO [Suspect]
     Active Substance: LUTETIUM LU-177 VIPIVOTIDE TETRAXETAN
     Indication: Prostate cancer
     Dosage: 7292 MBQ, ONCE/SINGLE (1ST CYCLE)
     Route: 065
     Dates: start: 20240122, end: 20240122

REACTIONS (4)
  - Anaemia [Fatal]
  - General physical health deterioration [Fatal]
  - Prostate cancer [Fatal]
  - Malignant neoplasm progression [Fatal]
